FAERS Safety Report 18411764 (Version 2)
Quarter: 2020Q4

REPORT INFORMATION
  Report Type: Spontaneous
  Country: GB (occurrence: GB)
  Receive Date: 20201021
  Receipt Date: 20201106
  Transmission Date: 20210114
  Serious: Yes (Other)
  Sender: FDA-Public Use
  Company Number: GB-PFIZER INC-2020406505

PATIENT
  Age: 33 Year
  Sex: Female
  Weight: 64 kg

DRUGS (4)
  1. SERTRALINE RANBAXY [Suspect]
     Active Substance: SERTRALINE HYDROCHLORIDE
     Indication: BULIMIA NERVOSA
     Dosage: 50 MG, DAILY
     Route: 048
     Dates: start: 20200306, end: 20200506
  2. SERTRALINE HYDROCHLORIDE. [Suspect]
     Active Substance: SERTRALINE HYDROCHLORIDE
     Indication: BULIMIA NERVOSA
     Dosage: UNK
  3. LUSTRAL [Suspect]
     Active Substance: SERTRALINE HYDROCHLORIDE
     Indication: BULIMIA NERVOSA
     Dosage: 50 MG, DAILY
     Route: 048
     Dates: start: 2020, end: 2020
  4. ELOINE [Concomitant]

REACTIONS (11)
  - Bulimia nervosa [Not Recovered/Not Resolved]
  - Fatigue [Unknown]
  - Anxiety [Unknown]
  - Off label use [Unknown]
  - Product substitution issue [Unknown]
  - Suicidal ideation [Not Recovered/Not Resolved]
  - Hypoaesthesia [Not Recovered/Not Resolved]
  - Panic attack [Not Recovered/Not Resolved]
  - Condition aggravated [Not Recovered/Not Resolved]
  - Insomnia [Unknown]
  - Product use in unapproved indication [Unknown]

NARRATIVE: CASE EVENT DATE: 20200306
